FAERS Safety Report 8489946-5 (Version None)
Quarter: 2012Q3

REPORT INFORMATION
  Report Type: 
  Country: None (occurrence: None)
  Receive Date: 20120705
  Receipt Date: 20120627
  Transmission Date: 20120928
  Serious: Yes (Other)
  Sender: FDA-Public Use
  Company Number: GB-BAXTER-2012BAX008436

PATIENT
  Sex: Female

DRUGS (2)
  1. DEXTROSE 5% [Suspect]
     Route: 042
     Dates: start: 20120613
  2. OXALIPLATIN [Suspect]
     Route: 042
     Dates: start: 20120613

REACTIONS (1)
  - ANAPHYLACTIC REACTION [None]
